FAERS Safety Report 9498127 (Version 1)
Quarter: 2013Q3

REPORT INFORMATION
  Report Type: Spontaneous
  Country: US (occurrence: None)
  Receive Date: 20130903
  Receipt Date: 20130903
  Transmission Date: 20140515
  Serious: No
  Sender: FDA-Public Use
  Company Number: None

PATIENT
  Age: 66 Year
  Sex: Female
  Weight: 49.9 kg

DRUGS (1)
  1. BENICAR [Suspect]
     Indication: HYPERTENSION
     Route: 048
     Dates: start: 20111201, end: 20130701

REACTIONS (3)
  - Weight decreased [None]
  - Diarrhoea [None]
  - Coeliac disease [None]
